FAERS Safety Report 8979636 (Version 1)
Quarter: 2012Q4

REPORT INFORMATION
  Report Type: 
  Country: NL (occurrence: NL)
  Receive Date: 20121221
  Receipt Date: 20121221
  Transmission Date: 20130627
  Serious: Yes (Death)
  Sender: FDA-Public Use
  Company Number: PHHY2012NL117879

PATIENT
  Sex: Male

DRUGS (1)
  1. TOBI [Suspect]
     Indication: PNEUMONIA

REACTIONS (1)
  - Death [Fatal]
